FAERS Safety Report 9354864 (Version 1)
Quarter: 2013Q2

REPORT INFORMATION
  Report Type: Spontaneous
  Country: BR (occurrence: BR)
  Receive Date: 20130619
  Receipt Date: 20130619
  Transmission Date: 20140414
  Serious: Yes (Death)
  Sender: FDA-Public Use
  Company Number: BR-ROCHE-1195703

PATIENT
  Sex: Female

DRUGS (3)
  1. AVASTIN [Suspect]
     Indication: LUNG ADENOCARCINOMA STAGE IV
     Route: 065
  2. TAXOL [Suspect]
     Indication: LUNG ADENOCARCINOMA STAGE IV
     Route: 065
  3. CARBOPLATIN [Suspect]
     Indication: LUNG ADENOCARCINOMA STAGE IV
     Route: 065

REACTIONS (6)
  - Pulmonary haemorrhage [Fatal]
  - Respiratory tract haemorrhage [Fatal]
  - Atrial fibrillation [Fatal]
  - Respiratory failure [Fatal]
  - Dyspnoea [Fatal]
  - Malaise [Fatal]
